FAERS Safety Report 25757525 (Version 7)
Quarter: 2025Q4

REPORT INFORMATION
  Report Type: Spontaneous
  Country: IN (occurrence: IN)
  Receive Date: 20250903
  Receipt Date: 20251022
  Transmission Date: 20260118
  Serious: No
  Sender: PFIZER
  Company Number: IN-PFIZER INC-PV202500104825

PATIENT
  Age: 47 Year
  Sex: Female

DRUGS (1)
  1. LORLATINIB [Suspect]
     Active Substance: LORLATINIB
     Dosage: 100 MG, 1X/DAY
     Route: 048
     Dates: start: 20250822

REACTIONS (23)
  - Pain [Not Recovered/Not Resolved]
  - Dyspnoea [Unknown]
  - Anxiety [Not Recovered/Not Resolved]
  - Stress [Not Recovered/Not Resolved]
  - Spinal pain [Recovering/Resolving]
  - Gait disturbance [Recovering/Resolving]
  - Full blood count abnormal [Not Recovered/Not Resolved]
  - Dyspnoea exertional [Not Recovered/Not Resolved]
  - Asthenia [Not Recovered/Not Resolved]
  - Neck pain [Not Recovered/Not Resolved]
  - Peripheral swelling [Not Recovered/Not Resolved]
  - Blood cholesterol increased [Recovered/Resolved]
  - Weight increased [Not Recovered/Not Resolved]
  - Blood triglycerides increased [Not Recovered/Not Resolved]
  - Lipids increased [Not Recovered/Not Resolved]
  - Haemoglobin decreased [Not Recovered/Not Resolved]
  - Glycosylated haemoglobin increased [Not Recovered/Not Resolved]
  - Sleep disorder [Not Recovered/Not Resolved]
  - Waist circumference increased [Not Recovered/Not Resolved]
  - Hyperphagia [Not Recovered/Not Resolved]
  - Fatigue [Not Recovered/Not Resolved]
  - Back pain [Not Recovered/Not Resolved]
  - Abdominal distension [Not Recovered/Not Resolved]

NARRATIVE: CASE EVENT DATE: 20250101
